FAERS Safety Report 9337206 (Version 2)
Quarter: 2014Q1

REPORT INFORMATION
  Report Type: Spontaneous
  Country: IN (occurrence: IN)
  Receive Date: 20130607
  Receipt Date: 20140207
  Transmission Date: 20141002
  Serious: Yes (Hospitalization, Other)
  Sender: FDA-Public Use
  Company Number: IN-MERCK-1301IND003706

PATIENT
  Age: 65 Year
  Sex: Female

DRUGS (2)
  1. VIRAFERONPEG [Suspect]
     Dosage: 80 MICROGRAM, QW
  2. REBETOL [Suspect]
     Route: 048

REACTIONS (8)
  - Appendicitis [Unknown]
  - Surgery [Unknown]
  - Asthenia [Unknown]
  - Pyrexia [Unknown]
  - Aphthous stomatitis [Unknown]
  - Cough [Unknown]
  - Decreased appetite [Unknown]
  - Gastric infection [Unknown]
